FAERS Safety Report 6002266-3 (Version None)
Quarter: 2008Q4

REPORT INFORMATION
  Report Type: 
  Country: None (occurrence: None)
  Receive Date: 20081215
  Receipt Date: 20071206
  Transmission Date: 20090506
  Serious: No
  Sender: FDA-Public Use
  Company Number: US-AMGEN-KDL253248

PATIENT
  Sex: Male
  Weight: 109.9 kg

DRUGS (3)
  1. ENBREL [Suspect]
     Indication: ANKYLOSING SPONDYLITIS
     Route: 058
     Dates: start: 20050816
  2. ACTOS [Concomitant]
  3. GLIPIZIDE [Concomitant]

REACTIONS (5)
  - ANXIETY DISORDER [None]
  - FEELING JITTERY [None]
  - IRRITABILITY [None]
  - NERVOUSNESS [None]
  - PARANOIA [None]
